FAERS Safety Report 12405533 (Version 1)
Quarter: 2016Q2

REPORT INFORMATION
  Report Type: Spontaneous
  Country: FR (occurrence: FR)
  Receive Date: 20160525
  Receipt Date: 20160525
  Transmission Date: 20160815
  Serious: Yes (Death)
  Sender: FDA-Public Use
  Company Number: FR-ROCHE-1763426

PATIENT
  Age: 94 Year
  Sex: Male

DRUGS (13)
  1. LASILIX [Concomitant]
     Active Substance: FUROSEMIDE
     Route: 065
  2. ALDACTONE [Concomitant]
     Active Substance: SPIRONOLACTONE
     Route: 065
  3. ROCEPHINE [Suspect]
     Active Substance: CEFTRIAXONE SODIUM
     Indication: URINARY TRACT INFECTION
     Route: 065
     Dates: start: 20160421, end: 20160423
  4. PREVISCAN (FRANCE) [Suspect]
     Active Substance: FLUINDIONE
     Indication: PRODUCT USED FOR UNKNOWN INDICATION
     Route: 048
     Dates: start: 20160429, end: 20160430
  5. DUROGESIC [Concomitant]
     Active Substance: FENTANYL
     Route: 065
  6. LEVEMIR [Concomitant]
     Active Substance: INSULIN DETEMIR
     Dosage: IN THE MORNING
     Route: 065
  7. BISOCE [Concomitant]
     Active Substance: BISOPROLOL
     Route: 065
  8. DAFALGAN CODEINE [Concomitant]
     Active Substance: ACETAMINOPHEN\CODEINE PHOSPHATE
  9. COUMADINE [Suspect]
     Active Substance: WARFARIN SODIUM
     Indication: PRODUCT USED FOR UNKNOWN INDICATION
     Dosage: ALTERNATING BETWEEN 1/2 TAB AND 3/4 TAB
     Route: 048
     Dates: end: 20160429
  10. DIFFU K [Concomitant]
     Active Substance: POTASSIUM CHLORIDE
  11. XATRAL [Concomitant]
     Active Substance: ALFUZOSIN
     Route: 065
  12. AUGMENTIN [Suspect]
     Active Substance: AMOXICILLIN\CLAVULANATE POTASSIUM
     Indication: URINARY TRACT INFECTION
     Route: 048
     Dates: start: 20160423, end: 20160502
  13. COLCHICINE. [Concomitant]
     Active Substance: COLCHICINE
     Route: 065

REACTIONS (4)
  - Overdose [Fatal]
  - Peritoneal haemorrhage [Fatal]
  - Red blood cell count decreased [Fatal]
  - International normalised ratio increased [Fatal]

NARRATIVE: CASE EVENT DATE: 20160426
